FAERS Safety Report 4650266-8 (Version None)
Quarter: 2005Q2

REPORT INFORMATION
  Report Type: 
  Country: None (occurrence: None)
  Receive Date: 20050502
  Receipt Date: 20050418
  Transmission Date: 20051028
  Serious: Yes (Death, Life-Threatening)
  Sender: FDA-Public Use
  Company Number: JP-BRISTOL-MYERS SQUIBB COMPANY-12938189

PATIENT
  Age: 80 Year
  Sex: Female

DRUGS (4)
  1. STADOL [Suspect]
     Indication: SEDATION
     Route: 042
     Dates: start: 20010531, end: 20010531
  2. STADOL [Suspect]
     Indication: SURGERY
     Route: 042
     Dates: start: 20010531, end: 20010531
  3. CERCINE [Suspect]
     Indication: SEDATION
     Route: 042
     Dates: start: 20010531, end: 20010531
  4. CERCINE [Suspect]
     Indication: SURGERY
     Route: 042
     Dates: start: 20010531, end: 20010531

REACTIONS (4)
  - ANGINA PECTORIS [None]
  - APALLIC SYNDROME [None]
  - CARDIAC ARREST [None]
  - MARASMUS [None]
